FAERS Safety Report 9286629 (Version 2)
Quarter: 2013Q2

REPORT INFORMATION
  Report Type: Spontaneous
  Country: SE (occurrence: SE)
  Receive Date: 20130513
  Receipt Date: 20130612
  Transmission Date: 20140414
  Serious: Yes (Hospitalization, Other)
  Sender: FDA-Public Use
  Company Number: SE-ASTRAZENECA-2013SE30695

PATIENT
  Age: 867 Month
  Sex: Male

DRUGS (10)
  1. ATORVASTATIN KRKA [Concomitant]
  2. BEHEPAN (PFIZER) [Concomitant]
  3. ALVEDON FORTE(GLAXOSMITHKLINE) [Concomitant]
  4. TROMBYL (PFIZER) [Concomitant]
     Route: 048
  5. IMDUR [Concomitant]
     Route: 048
  6. GLYTRIN (MEDA) [Concomitant]
     Dosage: 0.4 MG/DOSE
     Route: 060
  7. BRILIQUE [Suspect]
     Route: 048
     Dates: start: 20130110, end: 20130402
  8. COAPROVEL (SANOFI PHARMA BRISTOL-MYERS SQUIBB SNC) [Concomitant]
     Dosage: 300 MG/12.5 MG
  9. FINASTERID (SANDOZ) [Concomitant]
  10. OMEPRAZOLE (PENSA) [Concomitant]
     Route: 048

REACTIONS (2)
  - Anaemia [Not Recovered/Not Resolved]
  - Epistaxis [Not Recovered/Not Resolved]
